FAERS Safety Report 5339481-8 (Version None)
Quarter: 2007Q2

REPORT INFORMATION
  Report Type: 
  Country: None (occurrence: None)
  Receive Date: 20070404
  Receipt Date: 20060418
  Transmission Date: 20071010
  Serious: Yes (Other)
  Sender: FDA-Public Use
  Company Number: 2006043432

PATIENT
  Age: 25 Year
  Sex: Male

DRUGS (6)
  1. GEODON [Suspect]
     Indication: ILL-DEFINED DISORDER
     Dosage: 80 MG (40 MG, 2 IN 1 D) UNKNOWN
     Dates: start: 20060101, end: 20060301
  2. LEXAPRO [Concomitant]
  3. WELLBUTRIN [Concomitant]
  4. ALL OTHER THERAPEUTIC PRODUCTS (ALL OTHER THERAPEUTIC PRODUCTS) [Concomitant]
  5. REMICADE [Concomitant]
  6. METHOTREXATE (METHOTREXATE) [Concomitant]

REACTIONS (3)
  - CONVERSION DISORDER [None]
  - CONVULSION [None]
  - SYNCOPE [None]
